FAERS Safety Report 8588257-7 (Version None)
Quarter: 2012Q3

REPORT INFORMATION
  Report Type: 
  Country: None (occurrence: None)
  Receive Date: 20120803
  Receipt Date: 20120803
  Transmission Date: 20120928
  Serious: Yes (Hospitalization)
  Sender: FDA-Public Use
  Company Number: None

PATIENT
  Sex: Female

DRUGS (9)
  1. TYLENOL [Concomitant]
  2. COUMADIN [Concomitant]
  3. VITAMIN D [Concomitant]
  4. FOLIC ACID [Concomitant]
  5. REMICADE [Concomitant]
  6. ABATACEPT [Suspect]
     Indication: DEEP VEIN THROMBOSIS
     Dosage: 125 MG SC
     Route: 058
     Dates: start: 20110914
  7. METHOTREXATE [Concomitant]
  8. BIOTIN [Concomitant]
  9. CYMBALTA [Concomitant]

REACTIONS (2)
  - DEEP VEIN THROMBOSIS [None]
  - PULMONARY EMBOLISM [None]
